FAERS Safety Report 7984351-X (Version None)
Quarter: 2011Q4

REPORT INFORMATION
  Report Type: 
  Country: None (occurrence: None)
  Receive Date: 20111216
  Receipt Date: 20111207
  Transmission Date: 20120403
  Serious: Yes (Hospitalization)
  Sender: FDA-Public Use
  Company Number: US-AMGEN-USASP2011065044

PATIENT
  Age: 50 Year
  Sex: Female

DRUGS (2)
  1. SENSIPAR [Suspect]
     Indication: HYPERPARATHYROIDISM SECONDARY
     Dosage: 30 MG, QD
  2. FOSRENOL [Concomitant]

REACTIONS (3)
  - GASTROINTESTINAL TUBE INSERTION [None]
  - CONVULSION [None]
  - BLOOD POTASSIUM INCREASED [None]
